FAERS Safety Report 4551750-8 (Version None)
Quarter: 2005Q1

REPORT INFORMATION
  Report Type: 
  Country: None (occurrence: None)
  Receive Date: 20050110
  Receipt Date: 20050103
  Transmission Date: 20050727
  Serious: Yes (Life-Threatening, Hospitalization)
  Sender: FDA-Public Use
  Company Number: 2005000645

PATIENT
  Age: 51 Year
  Sex: Male

DRUGS (15)
  1. LINEZOLID                         (LINEZOLID) [Suspect]
     Indication: EAR INFECTION
     Dosage: 1200 MG (600 MG, BID), ORAL
     Route: 048
     Dates: start: 20040913, end: 20041107
  2. OXYCODONE HCL [Concomitant]
  3. POTASSIUM CHLORIDE [Concomitant]
     Route: 048
  4. DISULFIRAM [Concomitant]
  5. ESOMEPRAZOLE (ESOMEPRAZOLE) [Concomitant]
     Route: 048
  6. ............... [Concomitant]
  7. MICONAZOLE [Concomitant]
  8. VITAMINERAL (MINERALS NOS, VITAMINS NOS) [Concomitant]
  9. ACETAMINOPHEN [Concomitant]
  10. DIPHENHYDRAMINE HYDROCHLORIDE [Concomitant]
  11. FUROSEMIDE [Concomitant]
  12. THIAMINE HCL [Concomitant]
  13. VITAMIN B (VITAMIN B) [Concomitant]
  14. SPIRONOLACTONE [Concomitant]
  15. CIPROFLOXACIN [Concomitant]

REACTIONS (5)
  - APLASTIC ANAEMIA [None]
  - BLOOD CREATININE INCREASED [None]
  - ELECTROLYTE IMBALANCE [None]
  - RENAL DISORDER [None]
  - THERAPEUTIC AGENT TOXICITY [None]
